FAERS Safety Report 7869530-4 (Version None)
Quarter: 2011Q4

REPORT INFORMATION
  Report Type: 
  Country: None (occurrence: None)
  Receive Date: 20111028
  Receipt Date: 20110104
  Transmission Date: 20120403
  Serious: No
  Sender: FDA-Public Use
  Company Number: US-AMGEN-USASP2011000420

PATIENT
  Sex: Male

DRUGS (2)
  1. ENBREL [Suspect]
     Indication: PSORIATIC ARTHROPATHY
     Dosage: UNK
  2. ENBREL [Suspect]
     Indication: PSORIASIS

REACTIONS (4)
  - PSORIASIS [None]
  - DRUG INEFFECTIVE [None]
  - NAIL DISORDER [None]
  - ARTHRALGIA [None]
